FAERS Safety Report 4425256-0 (Version None)
Quarter: 2004Q3

REPORT INFORMATION
  Report Type: 
  Country: None (occurrence: None)
  Receive Date: 20040810
  Receipt Date: 20040729
  Transmission Date: 20050211
  Serious: Yes (Other)
  Sender: FDA-Public Use
  Company Number: 2004226247US

PATIENT
  Sex: Female

DRUGS (5)
  1. PROVERA [Suspect]
     Indication: HORMONE REPLACEMENT THERAPY
     Dates: start: 19990421, end: 19990621
  2. PROMETERIUM (PROGESTERONE) [Suspect]
     Indication: HORMONE REPLACEMENT THERAPY
     Dates: start: 19990722, end: 20000716
  3. ESTRATAB [Suspect]
     Indication: HORMONE REPLACEMENT THERAPY
     Dates: start: 19990317, end: 20000616
  4. ORTHO-PREFEST [Suspect]
     Indication: HORMONE REPLACEMENT THERAPY
     Dates: start: 20001012, end: 20020516
  5. ACTIVELLA [Suspect]
     Indication: HORMONE REPLACEMENT THERAPY
     Dates: start: 20010906, end: 20030101

REACTIONS (1)
  - BREAST CANCER FEMALE [None]
